FAERS Safety Report 7677117-1 (Version None)
Quarter: 2011Q3

REPORT INFORMATION
  Report Type: 
  Country: None (occurrence: None)
  Receive Date: 20110811
  Receipt Date: 20110801
  Transmission Date: 20111222
  Serious: Yes (Hospitalization)
  Sender: FDA-Public Use
  Company Number: US-JNJFOC-20081104704

PATIENT
  Sex: Male
  Weight: 45.8 kg

DRUGS (5)
  1. INFLIXIMAB [Suspect]
     Indication: INFLAMMATORY BOWEL DISEASE
     Route: 042
     Dates: start: 20071102
  2. MESALAMINE [Concomitant]
     Indication: INFLAMMATORY BOWEL DISEASE
  3. MERCAPTOPURINE [Concomitant]
     Indication: INFLAMMATORY BOWEL DISEASE
  4. METRONIDAZOLE [Concomitant]
     Indication: INFLAMMATORY BOWEL DISEASE
  5. INFLIXIMAB [Suspect]
     Route: 042
     Dates: start: 20081030

REACTIONS (1)
  - COLITIS [None]
